FAERS Safety Report 5972593-4 (Version None)
Quarter: 2008Q4

REPORT INFORMATION
  Report Type: 
  Country: None (occurrence: None)
  Receive Date: 20081125
  Receipt Date: 20081016
  Transmission Date: 20090506
  Serious: Yes (Life-Threatening, Hospitalization)
  Sender: FDA-Public Use
  Company Number: ADE# 08-171

PATIENT
  Age: 41 Year
  Sex: Male
  Weight: 104.3273 kg

DRUGS (3)
  1. TRAMADOL HYDROCHLORIDE [Suspect]
     Indication: PAIN
     Dosage: SEE B5
     Dates: start: 20060101, end: 20080101
  2. ATENOLOL [Concomitant]
  3. PROTONIX [Concomitant]

REACTIONS (7)
  - BACK PAIN [None]
  - CONFUSIONAL STATE [None]
  - CONVULSION [None]
  - FALL [None]
  - NECK PAIN [None]
  - RENAL FAILURE [None]
  - TONGUE HAEMORRHAGE [None]
